FAERS Safety Report 5469495-9 (Version None)
Quarter: 2007Q3

REPORT INFORMATION
  Report Type: 
  Country: None (occurrence: None)
  Receive Date: 20070927
  Receipt Date: 20070920
  Transmission Date: 20080115
  Serious: Yes (Hospitalization)
  Sender: FDA-Public Use
  Company Number: A0683347A

PATIENT
  Age: 65 Year
  Sex: Female

DRUGS (10)
  1. COREG [Suspect]
     Dosage: 3.125MG TWICE PER DAY
     Route: 048
     Dates: start: 20061201
  2. LISINOPRIL [Concomitant]
  3. DIGITEK [Concomitant]
  4. ASPIRIN [Concomitant]
  5. PREMARIN [Concomitant]
  6. MULTIVITAMIN + VITAMIN B COMPLEX [Concomitant]
  7. CALCIUM [Concomitant]
  8. GLUCOSAMINE COMPLEX [Concomitant]
  9. MULTIVITAMIN WITH VITAMIN C [Concomitant]
  10. MULTIVITAMINS + VITAMIN E [Concomitant]

REACTIONS (12)
  - ABNORMAL BEHAVIOUR [None]
  - ALOPECIA [None]
  - BACK PAIN [None]
  - CHEST DISCOMFORT [None]
  - DISCOMFORT [None]
  - DYSPNOEA [None]
  - FEELING ABNORMAL [None]
  - HEADACHE [None]
  - HEART RATE INCREASED [None]
  - HYPOTENSION [None]
  - PAINFUL RESPIRATION [None]
  - VERTIGO [None]
